FAERS Safety Report 24411201 (Version 1)
Quarter: 2024Q4

REPORT INFORMATION
  Report Type: Spontaneous
  Country: US (occurrence: US)
  Receive Date: 20241008
  Receipt Date: 20241008
  Transmission Date: 20250115
  Serious: No
  Sender: FERRING
  Company Number: US-FERRINGPH-2024FE04984

PATIENT
  Sex: Female

DRUGS (1)
  1. ADSTILADRIN [Suspect]
     Active Substance: NADOFARAGENE FIRADENOVEC-VNCG
     Indication: Bladder cancer
     Route: 065

REACTIONS (5)
  - Skin odour abnormal [Unknown]
  - Ageusia [Unknown]
  - Anosmia [Unknown]
  - Decreased appetite [Unknown]
  - Pain in extremity [Unknown]
